FAERS Safety Report 4282564-4 (Version None)
Quarter: 2004Q1

REPORT INFORMATION
  Report Type: 
  Country: None (occurrence: None)
  Receive Date: 20040129
  Receipt Date: 20040116
  Transmission Date: 20041129
  Serious: Yes (Hospitalization)
  Sender: FDA-Public Use
  Company Number: US-JNJFOC-20040103347

PATIENT
  Age: 44 Year
  Sex: Female
  Weight: 85.7298 kg

DRUGS (10)
  1. INFLIXIMAB (INFLIXIMAB, RECOMBINANT) LYOPHILIZED POWDER [Suspect]
     Indication: CROHN'S DISEASE
     Dosage: 5 MG/KG INTRAVENOUS; SEE IMAGE
     Route: 042
     Dates: start: 20020809
  2. INFLIXIMAB (INFLIXIMAB, RECOMBINANT) LYOPHILIZED POWDER [Suspect]
     Indication: CROHN'S DISEASE
     Dosage: 5 MG/KG INTRAVENOUS; SEE IMAGE
     Route: 042
     Dates: start: 20020823
  3. INFLIXIMAB (INFLIXIMAB, RECOMBINANT) LYOPHILIZED POWDER [Suspect]
     Indication: CROHN'S DISEASE
     Dosage: 5 MG/KG INTRAVENOUS; SEE IMAGE
     Route: 042
     Dates: start: 20021004
  4. INFLIXIMAB (INFLIXIMAB, RECOMBINANT) LYOPHILIZED POWDER [Suspect]
     Indication: CROHN'S DISEASE
     Dosage: 5 MG/KG INTRAVENOUS; SEE IMAGE
     Route: 042
     Dates: start: 20021206
  5. INFLIXIMAB (INFLIXIMAB, RECOMBINANT) LYOPHILIZED POWDER [Suspect]
     Indication: CROHN'S DISEASE
     Dosage: 5 MG/KG INTRAVENOUS; SEE IMAGE
     Route: 042
     Dates: start: 20030207
  6. INFLIXIMAB (INFLIXIMAB, RECOMBINANT) LYOPHILIZED POWDER [Suspect]
     Indication: CROHN'S DISEASE
     Dosage: 5 MG/KG INTRAVENOUS; SEE IMAGE
     Route: 042
     Dates: start: 20030404
  7. INFLIXIMAB (INFLIXIMAB, RECOMBINANT) LYOPHILIZED POWDER [Suspect]
     Indication: CROHN'S DISEASE
     Dosage: 5 MG/KG INTRAVENOUS; SEE IMAGE
     Route: 042
     Dates: start: 20030606
  8. MESALAMINE (MESALAZINE) [Concomitant]
  9. ACETAMINOPHEN [Concomitant]
  10. ANTIHISTAMINES (ANTIHISTAMINES) [Concomitant]

REACTIONS (6)
  - CROHN'S DISEASE [None]
  - DEHYDRATION [None]
  - DIARRHOEA [None]
  - HEADACHE [None]
  - HYSTERECTOMY [None]
  - TREATMENT NONCOMPLIANCE [None]
